FAERS Safety Report 4297434-5 (Version None)
Quarter: 2004Q1

REPORT INFORMATION
  Report Type: 
  Country: None (occurrence: None)
  Receive Date: 20040218
  Receipt Date: 20040209
  Transmission Date: 20041129
  Serious: Yes (Hospitalization)
  Sender: FDA-Public Use
  Company Number: GB-ROCHE-358482

PATIENT
  Age: 42 Year
  Sex: Male

DRUGS (4)
  1. PEG-INTERFERON ALFA 2A (RO 25-8310) [Suspect]
     Indication: KAPOSI'S SARCOMA AIDS RELATED
     Route: 058
  2. NEVIRAPINE [Concomitant]
     Dates: start: 19990101
  3. LAMIVUDINE [Concomitant]
     Dates: start: 19990101
  4. ABACAVIR [Concomitant]
     Dates: start: 19990101

REACTIONS (2)
  - BLOOD CHLORIDE INCREASED [None]
  - BLOOD POTASSIUM INCREASED [None]
